FAERS Safety Report 4963601-8 (Version None)
Quarter: 2006Q1

REPORT INFORMATION
  Report Type: 
  Country: None (occurrence: None)
  Receive Date: 20060201
  Receipt Date: 20051114
  Transmission Date: 20060701
  Serious: No
  Sender: FDA-Public Use
  Company Number: 2005PV004730

PATIENT
  Age: 46 Year
  Sex: Female
  Weight: 99.7913 kg

DRUGS (7)
  1. BYETTA [Suspect]
     Indication: DIABETES MELLITUS NON-INSULIN-DEPENDENT
     Dosage: 5 MCG, BID, SC
     Route: 058
     Dates: start: 20051111
  2. METFORMIN [Concomitant]
  3. AVANDIA [Concomitant]
  4. ZESTRIL [Concomitant]
  5. FOLIC ACID [Concomitant]
  6. POTASSIUM SUPPLEMENT [Concomitant]
  7. GLIPIZIDE [Concomitant]

REACTIONS (14)
  - ABDOMINAL PAIN UPPER [None]
  - BACK PAIN [None]
  - BLOOD GLUCOSE DECREASED [None]
  - DECREASED APPETITE [None]
  - DIZZINESS [None]
  - DYSPEPSIA [None]
  - FEELING COLD [None]
  - HOT FLUSH [None]
  - HYPERHIDROSIS [None]
  - INJECTION SITE BRUISING [None]
  - NAUSEA [None]
  - PAIN IN EXTREMITY [None]
  - TREMOR [None]
  - VOMITING [None]
